FAERS Safety Report 8035906-8 (Version None)
Quarter: 2012Q1

REPORT INFORMATION
  Report Type: 
  Country: None (occurrence: None)
  Receive Date: 20120111
  Receipt Date: 20120111
  Transmission Date: 20120608
  Serious: No
  Sender: FDA-Public Use
  Company Number: None

PATIENT
  Age: 59 Year
  Sex: Female
  Weight: 126.55 kg

DRUGS (1)
  1. CYMBALTA [Suspect]
     Indication: FATIGUE
     Dates: start: 20110801, end: 20120104

REACTIONS (13)
  - PAIN IN EXTREMITY [None]
  - INSOMNIA [None]
  - ABDOMINAL PAIN UPPER [None]
  - NECK PAIN [None]
  - MUSCLE SPASMS [None]
  - ARTHRALGIA [None]
  - FRUSTRATION [None]
  - FEELING ABNORMAL [None]
  - ANGER [None]
  - FREQUENT BOWEL MOVEMENTS [None]
  - WITHDRAWAL SYNDROME [None]
  - BACK PAIN [None]
  - THERAPY CESSATION [None]
